FAERS Safety Report 5028498-9 (Version None)
Quarter: 2006Q2

REPORT INFORMATION
  Report Type: 
  Country: None (occurrence: None)
  Receive Date: 20060617
  Receipt Date: 20060608
  Transmission Date: 20061013
  Serious: Yes (Life-Threatening, Hospitalization)
  Sender: FDA-Public Use
  Company Number: FR-ABBOTT-06P-056-0335448-00

PATIENT
  Age: 49 Year
  Sex: Male

DRUGS (8)
  1. DEPAKOTE [Suspect]
     Indication: BIPOLAR I DISORDER
     Route: 048
     Dates: start: 20040708, end: 20050221
  2. OLANZAPINE [Suspect]
     Indication: BIPOLAR I DISORDER
     Route: 048
     Dates: start: 20040815, end: 20050221
  3. LITHIUM CARBONATE [Concomitant]
     Indication: BIPOLAR I DISORDER
     Route: 048
     Dates: start: 19950101, end: 20050220
  4. LITHIUM CARBONATE [Concomitant]
     Dates: start: 20050222
  5. LOXAPINE SUCCINATE [Concomitant]
     Indication: BIPOLAR I DISORDER
     Route: 048
     Dates: start: 20040227, end: 20050220
  6. LOXAPINE SUCCINATE [Concomitant]
     Dates: start: 20050222
  7. CLONAZEPAM [Concomitant]
     Indication: BIPOLAR I DISORDER
     Route: 048
     Dates: start: 20040227, end: 20050220
  8. CLONAZEPAM [Concomitant]
     Dates: start: 20050222

REACTIONS (4)
  - C-REACTIVE PROTEIN INCREASED [None]
  - PANCREATITIS ACUTE [None]
  - PAROTID GLAND ENLARGEMENT [None]
  - STAPHYLOCOCCAL INFECTION [None]
